FAERS Safety Report 20836352 (Version 1)
Quarter: 2022Q2

REPORT INFORMATION
  Report Type: Spontaneous
  Country: US (occurrence: US)
  Receive Date: 20220517
  Receipt Date: 20220517
  Transmission Date: 20220721
  Serious: Yes (Other)
  Sender: FDA-Public Use
  Company Number: US-MLMSERVICE-20220316-3435314-1

PATIENT
  Age: 11 Year
  Sex: Male

DRUGS (2)
  1. DIVALPROEX SODIUM [Suspect]
     Active Substance: DIVALPROEX SODIUM
     Indication: Epileptic encephalopathy
     Dosage: UNK
     Route: 065
  2. ACETAZOLAMIDE [Suspect]
     Active Substance: ACETAZOLAMIDE
     Indication: Breath holding
     Dosage: UNK
     Route: 065

REACTIONS (3)
  - Hyperammonaemic encephalopathy [Unknown]
  - Cerebral atrophy [Unknown]
  - Cerebellar atrophy [Unknown]
